FAERS Safety Report 5566314-7 (Version None)
Quarter: 2007Q4

REPORT INFORMATION
  Report Type: 
  Country: None (occurrence: None)
  Receive Date: 20071214
  Receipt Date: 20070827
  Transmission Date: 20080405
  Serious: Yes (Other)
  Sender: FDA-Public Use
  Company Number: A0676605A

PATIENT
  Age: 80 Year
  Sex: Female

DRUGS (1)
  1. GLYCERIN MOUTHWASH (GLYCERIN) [Suspect]

REACTIONS (3)
  - PHARYNGOLARYNGEAL PAIN [None]
  - POOR QUALITY SLEEP [None]
  - THROAT IRRITATION [None]
